FAERS Safety Report 7070790-0 (Version None)
Quarter: 2010Q4

REPORT INFORMATION
  Report Type: 
  Country: None (occurrence: None)
  Receive Date: 20101027
  Receipt Date: 20101027
  Transmission Date: 20110411
  Serious: Yes (Life-Threatening)
  Sender: FDA-Public Use
  Company Number: None

PATIENT
  Age: 65 Year
  Sex: Male
  Weight: 107 kg

DRUGS (2)
  1. REFLUDAN [Suspect]
     Dosage: 43 MG ONCE IV BOLUS
     Route: 040
  2. HEPARIN [Suspect]

REACTIONS (8)
  - ACUTE RESPIRATORY FAILURE [None]
  - ANAEMIA [None]
  - BLOOD PRESSURE SYSTOLIC DECREASED [None]
  - ELECTROCARDIOGRAM ST SEGMENT DEPRESSION [None]
  - HAEMOGLOBIN DECREASED [None]
  - INFUSION SITE HAEMORRHAGE [None]
  - RENAL IMPAIRMENT [None]
  - RETROPERITONEAL HAEMATOMA [None]
